FAERS Safety Report 10460947 (Version 1)
Quarter: 2014Q3

REPORT INFORMATION
  Report Type: Spontaneous
  Country: US (occurrence: None)
  Receive Date: 20140917
  Receipt Date: 20140917
  Transmission Date: 20150326
  Serious: No
  Sender: FDA-Public Use
  Company Number: None

PATIENT
  Age: 44 Year
  Sex: Female
  Weight: 79.83 kg

DRUGS (1)
  1. ICY HOT [Suspect]
     Active Substance: MENTHOL\METHYL SALICYLATE
     Indication: MYALGIA
     Dates: start: 20140913, end: 20140913

REACTIONS (2)
  - Application site erythema [None]
  - Application site pain [None]

NARRATIVE: CASE EVENT DATE: 20140913
